FAERS Safety Report 23642220 (Version 1)
Quarter: 2024Q1

REPORT INFORMATION
  Report Type: Spontaneous
  Country: US (occurrence: None)
  Receive Date: 20240315
  Receipt Date: 20240315
  Transmission Date: 20240410
  Serious: Yes (Life-Threatening)
  Sender: FDA-Public Use
  Company Number: None

PATIENT
  Age: 58 Year
  Sex: Male
  Weight: 59.05 kg

DRUGS (12)
  1. CAPECITABINE [Suspect]
     Active Substance: CAPECITABINE
     Indication: Rectal cancer
     Dosage: OTHER FREQUENCY : BID 14D ON 7D OFF;?
     Route: 048
     Dates: start: 20240308, end: 20240314
  2. CAPECITABINE [Suspect]
     Active Substance: CAPECITABINE
     Indication: Rectal cancer
     Dosage: OTHER FREQUENCY : BID 14D ON 7D OFF;?
     Route: 048
     Dates: start: 20240308, end: 20240314
  3. FERROUS SULFATE [Concomitant]
     Active Substance: FERROUS SULFATE
  4. GABAPENTIN [Concomitant]
     Active Substance: GABAPENTIN
  5. HYDROMORPHONE [Concomitant]
     Active Substance: HYDROMORPHONE
  6. LOPERAMIDE [Concomitant]
     Active Substance: LOPERAMIDE
  7. METHADONE [Concomitant]
     Active Substance: METHADONE HYDROCHLORIDE
  8. MIRTAZAPINE [Concomitant]
     Active Substance: MIRTAZAPINE
  9. ONDANSETRON [Concomitant]
     Active Substance: ONDANSETRON
  10. MIRALAX [Concomitant]
     Active Substance: POLYETHYLENE GLYCOL 3350
  11. KLOR-CON [Concomitant]
     Active Substance: POTASSIUM CHLORIDE
  12. PROCHLORPERAZINE [Concomitant]
     Active Substance: PROCHLORPERAZINE

REACTIONS (3)
  - Kidney infection [None]
  - Asthenia [None]
  - Therapy interrupted [None]

NARRATIVE: CASE EVENT DATE: 20240314
